FAERS Safety Report 7677698-8 (Version None)
Quarter: 2011Q3

REPORT INFORMATION
  Report Type: 
  Country: None (occurrence: None)
  Receive Date: 20110811
  Receipt Date: 20110801
  Transmission Date: 20111222
  Serious: Yes (Other)
  Sender: FDA-Public Use
  Company Number: PHHY2011SI50505

PATIENT
  Age: 66 Year
  Sex: Male

DRUGS (2)
  1. PREDNISOLONE [Concomitant]
     Dosage: 48 MG, QID
  2. IMATINIB MESYLATE [Suspect]
     Indication: CHRONIC MYELOID LEUKAEMIA
     Dosage: 400 MG, QD
     Dates: start: 20080801

REACTIONS (8)
  - CORONARY ARTERY OCCLUSION [None]
  - FACE OEDEMA [None]
  - CHEST PAIN [None]
  - DYSPNOEA [None]
  - ALVEOLITIS [None]
  - GENE MUTATION IDENTIFICATION TEST POSITIVE [None]
  - WEIGHT INCREASED [None]
  - EYE OEDEMA [None]
